FAERS Safety Report 5909619-X (Version None)
Quarter: 2008Q4

REPORT INFORMATION
  Report Type: 
  Country: None (occurrence: None)
  Receive Date: 20081002
  Receipt Date: 20080923
  Transmission Date: 20090506
  Serious: Yes (Hospitalization)
  Sender: FDA-Public Use
  Company Number: 2008AL006858

PATIENT
  Age: 42 Year
  Sex: Female
  Weight: 86.1834 kg

DRUGS (24)
  1. DIGOXIN [Suspect]
     Indication: ARRHYTHMIA
     Dosage: 0.25MG, DAILY, PO
     Route: 048
     Dates: start: 19900101, end: 20080601
  2. ALBUTEROL [Concomitant]
  3. COMBIVENT [Concomitant]
  4. XYPONEX [Concomitant]
  5. KLOR-CON [Concomitant]
  6. METFORMIN [Concomitant]
  7. ACYCLOVIR SODIUM [Concomitant]
  8. CITALOPRAM HYDROBROMIDE [Concomitant]
  9. FUROSEMIDE [Concomitant]
  10. CARBAMAZEPINE [Concomitant]
  11. OXYCODONE HCL [Concomitant]
  12. PREDNISONE [Concomitant]
  13. LORAZEPAM [Concomitant]
  14. AMITRIPTYLINE HCL [Concomitant]
  15. LANXIN [Concomitant]
  16. ATENOLOL [Concomitant]
  17. PROMETHAZINE [Concomitant]
  18. INSULIN 70/20 [Concomitant]
  19. REGULAR INSULIN [Concomitant]
  20. LANUS [Concomitant]
  21. VITAMIN D [Concomitant]
  22. CALCIUM [Concomitant]
  23. VITAMIN B-12 [Concomitant]
  24. ZANTAC [Concomitant]

REACTIONS (3)
  - ARRHYTHMIA [None]
  - DRUG HYPERSENSITIVITY [None]
  - LOSS OF CONSCIOUSNESS [None]
